FAERS Safety Report 8317134-1 (Version None)
Quarter: 2012Q2

REPORT INFORMATION
  Report Type: 
  Country: None (occurrence: None)
  Receive Date: 20120425
  Receipt Date: 20120416
  Transmission Date: 20120825
  Serious: Yes (Hospitalization, Other)
  Sender: FDA-Public Use
  Company Number: AUR-APL-2012-01856

PATIENT
  Age: 50 Year
  Sex: Female

DRUGS (14)
  1. HYDROXYCHLOROQUINE SULFATE [Concomitant]
  2. CALCIUM AND VITAMIN D (CALCIUM D3 /01483701/) [Concomitant]
  3. METHOTREXATE [Suspect]
     Indication: RHEUMATOID ARTHRITIS
     Dosage: (7.5 MG, 1 WK), (7.5 MG, 1 WK)
     Dates: start: 19950101, end: 19970101
  4. METHOTREXATE [Suspect]
     Indication: RHEUMATOID ARTHRITIS
     Dosage: (7.5 MG, 1 WK), (7.5 MG, 1 WK)
     Dates: start: 20040101, end: 20060101
  5. ETANERCEPT (ETANERCEPT) [Suspect]
     Indication: RHEUMATOID ARTHRITIS
     Dates: start: 20060301
  6. STEROIDS [Suspect]
     Indication: RHEUMATOID ARTHRITIS
     Dosage: INTRA-ARTICULAR
     Route: 014
  7. ALENDRONIC ACID [Suspect]
     Indication: RHEUMATOID ARTHRITIS
     Dosage: (70 MG, 1 WK)
     Dates: start: 20030101
  8. AZATHIOPRINE [Suspect]
     Indication: RHEUMATOID ARTHRITIS
     Dosage: (100 MG, 1 D)
     Dates: start: 19971201
  9. PREDNISOLONE [Suspect]
     Indication: RHEUMATOID ARTHRITIS
     Dosage: (1 D)
  10. ADALIMUMAB (ADALIMUMAB) [Suspect]
     Indication: RHEUMATOID ARTHRITIS
     Dosage: 2.8571 MG (40 MG, 1 IN 2 WK)
     Dates: start: 20030401
  11. RITUXAN [Suspect]
     Indication: RHEUMATOID ARTHRITIS
     Dosage: 71.4286 MG (1000 MG, 1 IN 2 WK)
     Dates: start: 20070401
  12. RITUXAN [Suspect]
     Indication: RHEUMATOID ARTHRITIS
     Dosage: 71.4286 MG (1000 MG, 1 IN 2 WK)
     Dates: start: 20100301
  13. GOLD SALTS (GOLD) [Suspect]
     Indication: RHEUMATOID ARTHRITIS
     Dates: start: 19920101, end: 19940301
  14. SULFASALAZINE [Suspect]
     Indication: RHEUMATOID ARTHRITIS
     Dosage: (1.5 GM, 1 D)

REACTIONS (27)
  - MUCOSAL INFLAMMATION [None]
  - BLOOD IMMUNOGLOBULIN M INCREASED [None]
  - BILIARY CIRRHOSIS PRIMARY [None]
  - LUDWIG ANGINA [None]
  - ANTIMITOCHONDRIAL ANTIBODY POSITIVE [None]
  - ANTINUCLEAR ANTIBODY POSITIVE [None]
  - APHTHOUS STOMATITIS [None]
  - CHOLESTASIS [None]
  - ASTHENIA [None]
  - EXCORIATION [None]
  - GANGLIONEUROMA [None]
  - RHEUMATOID ARTHRITIS [None]
  - DISEASE RECURRENCE [None]
  - BONE DENSITY DECREASED [None]
  - CHEST PAIN [None]
  - MULTIPLE FRACTURES [None]
  - WEIGHT DECREASED [None]
  - PYREXIA [None]
  - VOMITING [None]
  - RIB FRACTURE [None]
  - HEPATIC STEATOSIS [None]
  - WRIST FRACTURE [None]
  - NAUSEA [None]
  - SIALOADENITIS [None]
  - ANTI-CYCLIC CITRULLINATED PEPTIDE ANTIBODY POSITIVE [None]
  - NO THERAPEUTIC RESPONSE [None]
  - SJOGREN'S SYNDROME [None]
